FAERS Safety Report 11672897 (Version 1)
Quarter: 2015Q4

REPORT INFORMATION
  Report Type: Spontaneous
  Country: US (occurrence: US)
  Receive Date: 20151027
  Receipt Date: 20151027
  Transmission Date: 20160304
  Serious: No
  Sender: FDA-Public Use
  Company Number: US-ELI_LILLY_AND_COMPANY-US201007002020

PATIENT
  Age: 87 Year
  Sex: Female

DRUGS (1)
  1. FORTEO [Suspect]
     Active Substance: TERIPARATIDE
     Dosage: 20 UG, DAILY (1/D)
     Route: 058
     Dates: start: 20100622

REACTIONS (9)
  - Blood glucose decreased [Unknown]
  - Headache [Unknown]
  - Back pain [Unknown]
  - Nausea [Unknown]
  - Nervousness [Unknown]
  - Malaise [Unknown]
  - Neck pain [Unknown]
  - Abdominal discomfort [Unknown]
  - Tremor [Unknown]

NARRATIVE: CASE EVENT DATE: 20100624
